FAERS Safety Report 13546833 (Version 1)
Quarter: 2017Q2

REPORT INFORMATION
  Report Type: Spontaneous
  Country: PL (occurrence: PL)
  Receive Date: 20170515
  Receipt Date: 20170515
  Transmission Date: 20170830
  Serious: No
  Sender: FDA-Public Use
  Company Number: PL-ROCHE-1919511

PATIENT
  Age: 29 Year
  Sex: Female

DRUGS (1)
  1. OCRELIZUMAB [Suspect]
     Active Substance: OCRELIZUMAB
     Indication: RELAPSING-REMITTING MULTIPLE SCLEROSIS
     Route: 065

REACTIONS (5)
  - Infection [Unknown]
  - Limb discomfort [Unknown]
  - Skin lesion [Unknown]
  - Gait disturbance [Unknown]
  - Unevaluable event [Unknown]
